FAERS Safety Report 14455638 (Version 1)
Quarter: 2018Q1

REPORT INFORMATION
  Report Type: Report from Study
  Country: None (occurrence: CA)
  Receive Date: 20180130
  Receipt Date: 20180130
  Transmission Date: 20180509
  Serious: Yes (Death, Hospitalization)
  Sender: FDA-Public Use
  Company Number: CA-ABBVIE-18K-028-2225843-00

PATIENT
  Age: 90 Year
  Sex: Female

DRUGS (1)
  1. HUMIRA [Suspect]
     Active Substance: ADALIMUMAB
     Indication: RHEUMATOID ARTHRITIS
     Route: 058
     Dates: start: 20121114, end: 20180112

REACTIONS (3)
  - Pneumonia [Fatal]
  - Influenza [Fatal]
  - Fall [Recovered/Resolved]

NARRATIVE: CASE EVENT DATE: 201801
